FAERS Safety Report 18349463 (Version 4)
Quarter: 2021Q3

REPORT INFORMATION
  Report Type: Spontaneous
  Country: FR (occurrence: FR)
  Receive Date: 20201006
  Receipt Date: 20210728
  Transmission Date: 20211014
  Serious: Yes (Other)
  Sender: FDA-Public Use
  Company Number: NVSC2020FR146604

PATIENT
  Age: 83 Year
  Sex: Female
  Weight: 70 kg

DRUGS (34)
  1. ZOFRAN [Suspect]
     Active Substance: ONDANSETRON HYDROCHLORIDE
     Indication: ANTIEMETIC SUPPORTIVE CARE
     Dosage: 8 MG
     Route: 065
     Dates: start: 20200211, end: 20200211
  2. ZOFRAN [Suspect]
     Active Substance: ONDANSETRON HYDROCHLORIDE
     Dosage: 8 MG, QD
     Route: 065
     Dates: start: 20200811, end: 20200811
  3. ISTODAX [Suspect]
     Active Substance: ROMIDEPSIN
     Dosage: 14 MG/M2
     Route: 041
     Dates: start: 20200817
  4. VALACICLOVIR [Concomitant]
     Active Substance: VALACYCLOVIR HYDROCHLORIDE
     Indication: PRODUCT USED FOR UNKNOWN INDICATION
     Dosage: UNK
     Route: 065
  5. BINOCRIT [Concomitant]
     Active Substance: ERYTHROPOIETIN
     Indication: PRODUCT USED FOR UNKNOWN INDICATION
     Dosage: 3000 IU
     Route: 065
  6. ZOFRAN [Suspect]
     Active Substance: ONDANSETRON HYDROCHLORIDE
     Dosage: 8 MG
     Route: 065
  7. ISTODAX [Suspect]
     Active Substance: ROMIDEPSIN
     Dosage: 14 MG/M2
     Route: 041
     Dates: start: 20200127
  8. ISTODAX [Suspect]
     Active Substance: ROMIDEPSIN
     Dosage: 14 MG/M2
     Route: 041
     Dates: start: 20200225
  9. ISTODAX [Suspect]
     Active Substance: ROMIDEPSIN
     Dosage: 14 MG/M2
     Route: 041
     Dates: start: 20200406
  10. ISTODAX [Suspect]
     Active Substance: ROMIDEPSIN
     Dosage: 14 MG/M2
     Route: 041
     Dates: start: 20200709
  11. ISTODAX [Suspect]
     Active Substance: ROMIDEPSIN
     Dosage: UNK
     Route: 041
     Dates: start: 20200806
  12. CHOP [Concomitant]
     Active Substance: CYCLOPHOSPHAMIDE\DOXORUBICIN\PREDNISONE\VINCRISTINE
     Indication: PRODUCT USED FOR UNKNOWN INDICATION
     Dosage: UNK
     Route: 065
  13. ISTODAX [Suspect]
     Active Substance: ROMIDEPSIN
     Dosage: 10 MG/M2
     Route: 041
     Dates: start: 20210604
  14. ISTODAX [Suspect]
     Active Substance: ROMIDEPSIN
     Dosage: 14 MG/M2
     Route: 041
     Dates: start: 20200921
  15. ISTODAX [Suspect]
     Active Substance: ROMIDEPSIN
     Dosage: 23.75 MG
     Route: 041
     Dates: start: 20200928
  16. ONDANSETRON [Concomitant]
     Active Substance: ONDANSETRON
     Indication: PRODUCT USED FOR UNKNOWN INDICATION
  17. MIANSERIN [Concomitant]
     Active Substance: MIANSERIN
     Indication: PRODUCT USED FOR UNKNOWN INDICATION
     Dosage: UNK
     Route: 065
  18. TRIMEBUTINE [Concomitant]
     Active Substance: TRIMEBUTINE
     Indication: PRODUCT USED FOR UNKNOWN INDICATION
     Dosage: UNK
     Route: 065
  19. ZOFRAN [Suspect]
     Active Substance: ONDANSETRON HYDROCHLORIDE
     Indication: PERIPHERAL T-CELL LYMPHOMA UNSPECIFIED
     Dosage: 8 MG, QD
     Route: 065
     Dates: start: 20200128, end: 20200128
  20. ISTODAX [Suspect]
     Active Substance: ROMIDEPSIN
     Indication: PERIPHERAL T-CELL LYMPHOMA UNSPECIFIED
     Dosage: UNK
     Route: 042
     Dates: start: 20200127
  21. ISTODAX [Suspect]
     Active Substance: ROMIDEPSIN
     Dosage: 11 MG/M2
     Route: 041
     Dates: start: 20200211
  22. ISTODAX [Suspect]
     Active Substance: ROMIDEPSIN
     Dosage: 14 MG/M2
     Route: 041
     Dates: start: 20200730
  23. ISTODAX [Suspect]
     Active Substance: ROMIDEPSIN
     Dosage: UNK
     Route: 041
     Dates: start: 20201005
  24. ONDANSETRON [Concomitant]
     Active Substance: ONDANSETRON
     Indication: ANTIEMETIC SUPPORTIVE CARE
     Dosage: 8MG
     Route: 065
  25. ISTODAX [Suspect]
     Active Substance: ROMIDEPSIN
     Dosage: 23.75 MG/M2, QD
     Route: 041
     Dates: start: 20200128, end: 20200128
  26. ISTODAX [Suspect]
     Active Substance: ROMIDEPSIN
     Dosage: 14 MG/M2
     Route: 041
     Dates: start: 20200309
  27. ISTODAX [Suspect]
     Active Substance: ROMIDEPSIN
     Dosage: 14 MG/M2
     Route: 041
     Dates: start: 20200717
  28. SERESTA [Concomitant]
     Active Substance: OXAZEPAM
     Indication: PRODUCT USED FOR UNKNOWN INDICATION
     Dosage: UNK
     Route: 065
  29. ISTODAX [Suspect]
     Active Substance: ROMIDEPSIN
     Dosage: 11 UNK,QD
     Route: 042
     Dates: start: 20200806
  30. ISTODAX [Suspect]
     Active Substance: ROMIDEPSIN
     Dosage: 23.75 MG/M2
     Route: 041
     Dates: start: 20200811, end: 20200811
  31. ISTODAX [Suspect]
     Active Substance: ROMIDEPSIN
     Dosage: 14 MG/M2
     Route: 041
     Dates: start: 20210409
  32. BENDAMUSTINE [Concomitant]
     Active Substance: BENDAMUSTINE
     Indication: PRODUCT USED FOR UNKNOWN INDICATION
     Dosage: UNK
     Route: 065
  33. RISPERDAL [Concomitant]
     Active Substance: RISPERIDONE
     Indication: PRODUCT USED FOR UNKNOWN INDICATION
     Dosage: UNK
     Route: 065
  34. ISTODAX [Suspect]
     Active Substance: ROMIDEPSIN
     Dosage: 14 MG/M2
     Route: 041
     Dates: start: 20200702

REACTIONS (7)
  - Tonsillitis [Recovered/Resolved]
  - Unevaluable event [Unknown]
  - Neutropenia [Recovered/Resolved]
  - Haematotoxicity [Unknown]
  - Neutropenia [Unknown]
  - Neutropenia [Recovered/Resolved]
  - Thrombocytopenia [Recovered/Resolved]

NARRATIVE: CASE EVENT DATE: 2020
